APPROVED DRUG PRODUCT: XYLOCAINE 5% W/ GLUCOSE 7.5%
Active Ingredient: LIDOCAINE HYDROCHLORIDE
Strength: 5%
Dosage Form/Route: INJECTABLE;SPINAL
Application: N010496 | Product #002
Applicant: ASTRAZENECA LP
Approved: Jul 7, 1982 | RLD: No | RS: No | Type: DISCN